FAERS Safety Report 6115312-3 (Version None)
Quarter: 2009Q1

REPORT INFORMATION
  Report Type: 
  Country: None (occurrence: None)
  Receive Date: 20090313
  Receipt Date: 20090304
  Transmission Date: 20090719
  Serious: Yes (Hospitalization, Other)
  Sender: FDA-Public Use
  Company Number: BR-ABBOTT-08P-020-0477699-00

PATIENT
  Sex: Female

DRUGS (6)
  1. HUMIRA [Suspect]
     Indication: RHEUMATOID ARTHRITIS
     Route: 058
     Dates: start: 20040601, end: 20081101
  2. METHOTREXATE [Concomitant]
     Indication: DRUG USE FOR UNKNOWN INDICATION
  3. PREDNISONE [Concomitant]
     Indication: RHEUMATOID ARTHRITIS
     Dates: end: 20081101
  4. INDOMETHACIN [Concomitant]
     Indication: DRUG USE FOR UNKNOWN INDICATION
  5. LISADOR [Concomitant]
     Indication: PAIN MANAGEMENT
     Dosage: NOT REPORTED
  6. DORFLEX [Concomitant]
     Indication: PAIN MANAGEMENT
     Dosage: NOT REPORTED

REACTIONS (13)
  - ANAEMIA [None]
  - ARTHRALGIA [None]
  - BONE EROSION [None]
  - BURSITIS [None]
  - DECREASED IMMUNE RESPONSIVENESS [None]
  - DEVICE RELATED INFECTION [None]
  - DYSSTASIA [None]
  - HEADACHE [None]
  - PARAESTHESIA [None]
  - PROSTHESIS IMPLANTATION [None]
  - RHEUMATOID FACTOR INCREASED [None]
  - SYNOVIAL DISORDER [None]
  - TREMOR [None]
